FAERS Safety Report 5311770-2 (Version None)
Quarter: 2007Q2

REPORT INFORMATION
  Report Type: 
  Country: None (occurrence: None)
  Receive Date: 20070430
  Receipt Date: 20060824
  Transmission Date: 20071010
  Serious: Yes (Hospitalization)
  Sender: FDA-Public Use
  Company Number: 2006UW01783

PATIENT
  Age: 60 Year
  Sex: Male
  Weight: 125.2 kg

DRUGS (15)
  1. NEXIUM [Suspect]
     Indication: GASTROOESOPHAGEAL REFLUX DISEASE
     Route: 048
     Dates: start: 20050905
  2. ASPIRIN [Concomitant]
  3. ALLOPURINOL [Concomitant]
  4. LOPRESSOR [Concomitant]
  5. POTASSIUM ACETATE [Concomitant]
  6. ZOCOR [Concomitant]
  7. THEOPHYLLINE [Concomitant]
  8. AMITRIPTYLINE HCL [Concomitant]
  9. AMIODARONE HCL [Concomitant]
  10. HYDRALAZINE HCL [Concomitant]
  11. MAGNESIUM SULFATE [Concomitant]
  12. ALDACTONE [Concomitant]
  13. DURAGESIC-100 [Concomitant]
  14. LASIX [Concomitant]
  15. COUMADIN [Concomitant]

REACTIONS (3)
  - BLOOD POTASSIUM DECREASED [None]
  - DRUG INEFFECTIVE [None]
  - HAEMORRHAGE [None]
